FAERS Safety Report 17223339 (Version 4)
Quarter: 2025Q3

REPORT INFORMATION
  Report Type: Spontaneous
  Country: EU (occurrence: EU)
  Receive Date: 20200102
  Receipt Date: 20250825
  Transmission Date: 20251021
  Serious: Yes (Other)
  Sender: AUROBINDO
  Company Number: EU-HOLSTEN-HOL-RAM-19_003

PATIENT
  Age: 58 Year
  Sex: Female

DRUGS (8)
  1. AMLODIPINE [Interacting]
     Active Substance: AMLODIPINE BESYLATE
     Indication: Rheumatoid arthritis
     Route: 065
  2. RAMIPRIL [Interacting]
     Active Substance: RAMIPRIL
     Indication: Rheumatoid arthritis
     Route: 048
  3. ESOMEPRAZOLE [Interacting]
     Active Substance: ESOMEPRAZOLE
     Indication: Rheumatoid arthritis
     Route: 065
  4. DIETARY SUPPLEMENT\HERBALS\INDIAN FRANKINCENSE [Suspect]
     Active Substance: DIETARY SUPPLEMENT\HERBALS\INDIAN FRANKINCENSE
     Indication: Rheumatoid arthritis
     Route: 065
  5. HYDROXYCHLOROQUINE [Interacting]
     Active Substance: HYDROXYCHLOROQUINE
     Indication: Rheumatoid arthritis
     Route: 065
  6. THYROXINE [Concomitant]
     Active Substance: LEVOTHYROXINE
     Indication: Product used for unknown indication
     Route: 065
  7. METHYLPREDNISOLONE [Concomitant]
     Active Substance: METHYLPREDNISOLONE
     Indication: Product used for unknown indication
     Dosage: 96 MILLIGRAM, ONCE A DAY
     Route: 065
  8. CLEMASTINE [Concomitant]
     Active Substance: CLEMASTINE
     Indication: Pruritus
     Dosage: UNK, 3 TIMES A DAY
     Route: 065

REACTIONS (4)
  - Acute febrile neutrophilic dermatosis [Unknown]
  - Off label use [Unknown]
  - Drug interaction [Unknown]
  - Product use in unapproved indication [Unknown]

NARRATIVE: CASE EVENT DATE: 20171001
